FAERS Safety Report 25215321 (Version 1)
Quarter: 2025Q2

REPORT INFORMATION
  Report Type: Report from Study
  Country: CO (occurrence: CO)
  Receive Date: 20250418
  Receipt Date: 20250418
  Transmission Date: 20250716
  Serious: Yes (Hospitalization)
  Sender: UCB
  Company Number: CO-UCBSA-2025021671

PATIENT
  Age: 49 Year
  Sex: Female

DRUGS (4)
  1. ROTIGOTINE [Suspect]
     Active Substance: ROTIGOTINE
     Indication: Parkinson^s disease
     Dosage: 8 MILLIGRAM, EVERY 24 HOURS
     Route: 062
     Dates: start: 20201130
  2. RASAGILINE [Concomitant]
     Active Substance: RASAGILINE
     Indication: Product used for unknown indication
  3. ZOPICLONE [Concomitant]
     Active Substance: ZOPICLONE
     Indication: Product used for unknown indication
  4. SERTRANQUIL [Concomitant]
     Indication: Product used for unknown indication

REACTIONS (7)
  - Suicide attempt [Unknown]
  - Poisoning [Not Recovered/Not Resolved]
  - Depression [Not Recovered/Not Resolved]
  - Mouth injury [Not Recovered/Not Resolved]
  - Tongue injury [Not Recovered/Not Resolved]
  - General physical health deterioration [Not Recovered/Not Resolved]
  - Off label use [Unknown]

NARRATIVE: CASE EVENT DATE: 20201130
